FAERS Safety Report 5200846-6 (Version None)
Quarter: 2007Q1

REPORT INFORMATION
  Report Type: 
  Country: None (occurrence: None)
  Receive Date: 20070108
  Receipt Date: 20070103
  Transmission Date: 20070707
  Serious: Yes (Life-Threatening, Hospitalization)
  Sender: FDA-Public Use
  Company Number: PHBS2007IN00483

PATIENT
  Age: 26 Year
  Sex: Female

DRUGS (2)
  1. OXYTOCIN [Suspect]
     Indication: PREMATURE RUPTURE OF MEMBRANES
     Dosage: 55 UNITS
  2. FLUID/ELECTROLYTE REPLACEMENT THERAPY [Concomitant]

REACTIONS (14)
  - BLOOD SODIUM DECREASED [None]
  - CENTRAL VENOUS PRESSURE INCREASED [None]
  - DYSPNOEA [None]
  - FACE OEDEMA [None]
  - HEART RATE INCREASED [None]
  - ORTHOPNOEA [None]
  - OXYGEN SATURATION DECREASED [None]
  - PCO2 DECREASED [None]
  - PO2 DECREASED [None]
  - PULMONARY OEDEMA [None]
  - RALES [None]
  - RESPIRATORY RATE INCREASED [None]
  - RESTLESSNESS [None]
  - RHONCHI [None]
